FAERS Safety Report 6014735-0 (Version None)
Quarter: 2008Q4

REPORT INFORMATION
  Report Type: 
  Country: None (occurrence: None)
  Receive Date: 20081126
  Receipt Date: 20080228
  Transmission Date: 20090506
  Serious: Yes (Other)
  Sender: FDA-Public Use
  Company Number: 168244USA

PATIENT
  Age: 8 Month
  Sex: Male
  Weight: 12.9 kg

DRUGS (2)
  1. CARBOPLATIN [Suspect]
     Indication: RETINOBLASTOMA
     Dosage: 6.2 MG (186 MG, 1 IN 1 M), INTRAVENOUS DRIP
     Route: 041
     Dates: start: 20071016, end: 20080107
  2. ETOPOSIDE [Concomitant]

REACTIONS (2)
  - PALLOR [None]
  - RASH ERYTHEMATOUS [None]
